FAERS Safety Report 8992894 (Version 1)
Quarter: 2013Q1

REPORT INFORMATION
  Report Type: Spontaneous
  Country: US (occurrence: US)
  Receive Date: 20130102
  Receipt Date: 20130102
  Transmission Date: 20140127
  Serious: Yes (Other)
  Sender: FDA-Public Use
  Company Number: US-BAYER-2012-136576

PATIENT
  Sex: Female

DRUGS (5)
  1. MIRENA [Suspect]
     Dosage: 20 MCG/24HR, CONT
     Route: 015
     Dates: start: 201212
  2. YAZ [Suspect]
  3. YASMIN [Suspect]
     Dosage: UNK
  4. ORTHO CYCLEN [Suspect]
  5. ZOLOFT [Concomitant]

REACTIONS (2)
  - Device dislocation [None]
  - Weight increased [None]
